FAERS Safety Report 15928447 (Version 5)
Quarter: 2019Q1

REPORT INFORMATION
  Report Type: Spontaneous
  Country: FR (occurrence: FR)
  Receive Date: 20190206
  Receipt Date: 20190306
  Transmission Date: 20190417
  Serious: Yes (Other)
  Sender: FDA-Public Use
  Company Number: FR-PROVELL PHARMACEUTICALS-2062210

PATIENT
  Age: 48 Year
  Sex: Female

DRUGS (8)
  1. EUTHYROX [Suspect]
     Active Substance: LEVOTHYROXINE SODIUM
     Dates: start: 2017
  2. OMEPRAZOLE. [Concomitant]
     Active Substance: OMEPRAZOLE
     Dates: start: 20170511
  3. ECONAZOLE ARROW [Concomitant]
     Dates: start: 20170511
  4. EUTHYROX [Suspect]
     Active Substance: LEVOTHYROXINE SODIUM
     Indication: HYPOTHYROIDISM
     Route: 048
     Dates: end: 20170919
  5. EUTHYROX [Suspect]
     Active Substance: LEVOTHYROXINE SODIUM
     Dates: start: 2017
  6. SPAGULAX [Concomitant]
     Active Substance: PLANTAGO OVATA SEED
     Dates: start: 20170511
  7. AERIUS [Concomitant]
     Route: 048
     Dates: start: 20170901
  8. EUTHYROX [Suspect]
     Active Substance: LEVOTHYROXINE SODIUM

REACTIONS (31)
  - Confusional state [Recovering/Resolving]
  - Back pain [Recovering/Resolving]
  - Anxiety [None]
  - Pollakiuria [None]
  - Dry skin [None]
  - Asthenia [Recovering/Resolving]
  - Mood swings [Recovered/Resolved]
  - Rheumatic disorder [Recovering/Resolving]
  - Weight increased [Recovering/Resolving]
  - Blood thyroid stimulating hormone increased [Recovered/Resolved]
  - Oral lichen planus [None]
  - Social avoidant behaviour [Recovering/Resolving]
  - Influenza like illness [Recovering/Resolving]
  - Gastrointestinal disorder [Recovering/Resolving]
  - Mental fatigue [None]
  - Alopecia [None]
  - Anger [Recovered/Resolved]
  - Abnormal behaviour [Recovering/Resolving]
  - Disturbance in attention [Recovering/Resolving]
  - Impaired work ability [Recovering/Resolving]
  - Crying [None]
  - Non-cardiac chest pain [Recovering/Resolving]
  - Feeling jittery [Recovering/Resolving]
  - Insomnia [Recovered/Resolved]
  - Irritability [Recovering/Resolving]
  - Memory impairment [Recovering/Resolving]
  - Suicidal ideation [None]
  - Arthralgia [Recovering/Resolving]
  - Pain in extremity [Recovering/Resolving]
  - Muscle spasms [Recovering/Resolving]
  - Constipation [None]

NARRATIVE: CASE EVENT DATE: 2017
